FAERS Safety Report 4801936-X (Version None)
Quarter: 2005Q4

REPORT INFORMATION
  Report Type: 
  Country: None (occurrence: None)
  Receive Date: 20051012
  Receipt Date: 20050916
  Transmission Date: 20060501
  Serious: Yes (Hospitalization, Other)
  Sender: FDA-Public Use
  Company Number: 2005001815

PATIENT
  Age: 73 Year
  Sex: Male
  Weight: 170 kg

DRUGS (7)
  1. TARCEVA [Suspect]
     Indication: PANCREATIC CARCINOMA
     Dosage: 150 MG (QD), ORAL
     Route: 048
     Dates: start: 20050501
  2. WARFARIN SODIUM [Concomitant]
  3. EMEND [Concomitant]
  4. GEMZAR [Concomitant]
  5. PANCREASE (PANCRELIPASE) [Concomitant]
  6. SURCRALFATE (SUCRALFATE) [Concomitant]
  7. OMEPRAZOLE [Concomitant]

REACTIONS (8)
  - DECREASED APPETITE [None]
  - DIARRHOEA [None]
  - GASTROINTESTINAL HAEMORRHAGE [None]
  - NASOPHARYNGITIS [None]
  - PURPURA [None]
  - RASH PRURITIC [None]
  - ULCER [None]
  - WEIGHT DECREASED [None]
